FAERS Safety Report 12862392 (Version 2)
Quarter: 2016Q4

REPORT INFORMATION
  Report Type: Report from Study
  Country: US (occurrence: US)
  Receive Date: 20161019
  Receipt Date: 20161021
  Transmission Date: 20170207
  Serious: Yes (Hospitalization)
  Sender: FDA-Public Use
  Company Number: US-JNJFOC-20161011894

PATIENT
  Age: 19 Year
  Sex: Male
  Weight: 67.6 kg

DRUGS (2)
  1. HUMIRA [Concomitant]
     Active Substance: ADALIMUMAB
     Route: 065
     Dates: start: 20160722
  2. REMICADE [Suspect]
     Active Substance: INFLIXIMAB
     Indication: INFLAMMATORY BOWEL DISEASE
     Route: 042
     Dates: start: 20140926, end: 20160718

REACTIONS (1)
  - Crohn^s disease [Recovered/Resolved]

NARRATIVE: CASE EVENT DATE: 20160912
